FAERS Safety Report 6922403-3 (Version None)
Quarter: 2010Q3

REPORT INFORMATION
  Report Type: 
  Country: None (occurrence: None)
  Receive Date: 20100813
  Receipt Date: 20100729
  Transmission Date: 20110219
  Serious: Yes (Life-Threatening, Hospitalization, Other)
  Sender: FDA-Public Use
  Company Number: GB-RANBAXY-2010RR-37059

PATIENT
  Age: 32 Year
  Sex: Male

DRUGS (4)
  1. SERTRALINE HYDROCHLORIDE [Suspect]
     Indication: DEPRESSION
     Dosage: 100 MG, QD
     Route: 048
     Dates: start: 20100426, end: 20100716
  2. AMPICILLIN SODIUM/SULBACTAM SODIUM [Concomitant]
  3. DICLOFENAC [Concomitant]
  4. ACETAMINOPHEN [Concomitant]

REACTIONS (4)
  - ABDOMINAL PAIN [None]
  - HEPATITIS ACUTE [None]
  - JAUNDICE [None]
  - LIVER FUNCTION TEST ABNORMAL [None]
